FAERS Safety Report 4538586-9 (Version None)
Quarter: 2004Q4

REPORT INFORMATION
  Report Type: 
  Country: None (occurrence: None)
  Receive Date: 20041222
  Receipt Date: 20041206
  Transmission Date: 20050328
  Serious: No
  Sender: FDA-Public Use
  Company Number: A01200406202

PATIENT
  Age: 52 Year
  Sex: Male

DRUGS (4)
  1. CLOPIDOGREL - TABLET - 75 MG [Suspect]
     Indication: CORONARY ARTERIAL STENT INSERTION
     Dosage: 75 MG OD ORAL
     Route: 048
     Dates: start: 20041001, end: 20041109
  2. ASPIRIN [Concomitant]
  3. MYCOPHENIC ACID [Concomitant]
  4. CYCLOSPORINE [Concomitant]

REACTIONS (5)
  - CONDITION AGGRAVATED [None]
  - DERMATITIS EXFOLIATIVE [None]
  - ERYTHEMA [None]
  - PSORIASIS [None]
  - TREATMENT NONCOMPLIANCE [None]
